FAERS Safety Report 5631320-0 (Version None)
Quarter: 2008Q1

REPORT INFORMATION
  Report Type: 
  Country: None (occurrence: None)
  Receive Date: 20080219
  Receipt Date: 20080208
  Transmission Date: 20080703
  Serious: Yes (Hospitalization)
  Sender: FDA-Public Use
  Company Number: US-GILEAD-2008-0015324

PATIENT
  Sex: Male

DRUGS (12)
  1. LETAIRIS [Suspect]
     Indication: PULMONARY HYPERTENSION
     Route: 048
  2. CYCLOSPORINE [Suspect]
     Route: 048
     Dates: end: 20080101
  3. CYCLOSPORINE [Suspect]
     Route: 048
     Dates: start: 20080101
  4. NORVASC [Concomitant]
  5. KEPPRA [Concomitant]
  6. FLOMAX [Concomitant]
     Indication: BENIGN PROSTATIC HYPERPLASIA
     Route: 048
  7. FOLIC ACID [Concomitant]
     Route: 048
  8. ACTIGALL [Concomitant]
     Route: 048
  9. RAPAMUNE [Concomitant]
     Route: 048
  10. METOPROLOL TARTRATE [Concomitant]
  11. REVATIO [Concomitant]
     Route: 048
  12. ALDACTONE [Concomitant]

REACTIONS (4)
  - ASTHENIA [None]
  - BLOOD CREATININE INCREASED [None]
  - BLOOD UREA INCREASED [None]
  - LETHARGY [None]
